FAERS Safety Report 4503546-0 (Version None)
Quarter: 2004Q4

REPORT INFORMATION
  Report Type: 
  Country: None (occurrence: None)
  Receive Date: 20041112
  Receipt Date: 20041102
  Transmission Date: 20050328
  Serious: Yes (Hospitalization)
  Sender: FDA-Public Use
  Company Number: 200410586BYL

PATIENT
  Age: 77 Year
  Sex: Female
  Weight: 42 kg

DRUGS (11)
  1. GLUCOBAY [Suspect]
     Indication: DIABETES MELLITUS
     Dosage: 100 MG, TID, ORAL
     Route: 048
     Dates: end: 20041003
  2. GLIMICRON [Concomitant]
  3. AMISALIN [Concomitant]
  4. SELBEX [Concomitant]
  5. GASTER D [Concomitant]
  6. NEUROVITAN [Concomitant]
  7. NORVASC [Concomitant]
  8. DIOVAN [Concomitant]
  9. GOODMIN [Concomitant]
  10. BAYASPIRIN [Concomitant]
  11. MITASOLBIDE [Concomitant]

REACTIONS (1)
  - INTESTINAL HYPOMOTILITY [None]
